FAERS Safety Report 17730755 (Version 5)
Quarter: 2020Q2

REPORT INFORMATION
  Report Type: Spontaneous
  Country: DK (occurrence: DK)
  Receive Date: 20200430
  Receipt Date: 20200514
  Transmission Date: 20200714
  Serious: Yes (Death, Other)
  Sender: FDA-Public Use
  Company Number: NVSC2020DK117479

PATIENT
  Age: 4 Decade
  Sex: Male

DRUGS (2)
  1. CYPROTERONE ACETATE [Suspect]
     Active Substance: CYPROTERONE ACETATE
     Indication: ANTIANDROGEN THERAPY
     Dosage: 300 MG, BIW  (EVERY 14 DAYS)
     Route: 065
     Dates: start: 1990
  2. LEUPRORELIN [Suspect]
     Active Substance: LEUPROLIDE ACETATE
     Indication: ANTIANDROGEN THERAPY
     Dosage: 11.25 UG, Q3MO
     Route: 058
     Dates: start: 1990

REACTIONS (3)
  - Product use in unapproved indication [Unknown]
  - Acute myocardial infarction [Fatal]
  - Myocardial infarction [Fatal]

NARRATIVE: CASE EVENT DATE: 1990
